FAERS Safety Report 15440315 (Version 4)
Quarter: 2019Q1

REPORT INFORMATION
  Report Type: Spontaneous
  Country: GB (occurrence: GB)
  Receive Date: 20180928
  Receipt Date: 20190111
  Transmission Date: 20190417
  Serious: Yes (Life-Threatening, Hospitalization, Other)
  Sender: FDA-Public Use
  Company Number: PHHY2018GB102495

PATIENT
  Age: 64 Year
  Sex: Male

DRUGS (6)
  1. RISPERIDONE. [Suspect]
     Active Substance: RISPERIDONE
     Indication: INTENTIONAL OVERDOSE
     Dosage: 88 MG, UNK (MISUSE)
     Route: 065
  2. PRAVASTATIN. [Suspect]
     Active Substance: PRAVASTATIN
     Indication: INTENTIONAL OVERDOSE
     Dosage: 840 MG, UNK (MISUSE)
     Route: 065
  3. NIMODIPINE. [Suspect]
     Active Substance: NIMODIPINE
     Indication: INTENTIONAL OVERDOSE
     Dosage: 840 MG, UNK (MISUSE)
     Route: 048
  4. METFORMIN [Suspect]
     Active Substance: METFORMIN HYDROCHLORIDE
     Indication: INTENTIONAL OVERDOSE
     Dosage: 42 G, UNK(MISUSE)
     Route: 065
  5. RANITIDINE. [Suspect]
     Active Substance: RANITIDINE
     Indication: INTENTIONAL OVERDOSE
     Dosage: 9 G, UNK (MISUSE)
     Route: 048
  6. RISPERIDONE. [Suspect]
     Active Substance: RISPERIDONE
     Dosage: 88 MG, UNK
     Route: 048

REACTIONS (17)
  - Brain injury [Recovering/Resolving]
  - Polyneuropathy [Recovering/Resolving]
  - Cerebral ischaemia [Recovering/Resolving]
  - Cognitive disorder [Recovering/Resolving]
  - Renal failure [Recovering/Resolving]
  - Toxicity to various agents [Recovering/Resolving]
  - Intentional overdose [Recovering/Resolving]
  - Cardiogenic shock [Recovered/Resolved with Sequelae]
  - Intensive care unit acquired weakness [Recovering/Resolving]
  - Lactic acidosis [Unknown]
  - Cardiovascular disorder [Recovering/Resolving]
  - Hypoxic-ischaemic encephalopathy [Unknown]
  - Sinus bradycardia [Recovering/Resolving]
  - Nervous system disorder [Unknown]
  - Impaired work ability [Unknown]
  - Hypotension [Recovering/Resolving]
  - Hyperlactacidaemia [Unknown]
